FAERS Safety Report 6280771-2 (Version None)
Quarter: 2009Q3

REPORT INFORMATION
  Report Type: 
  Country: None (occurrence: None)
  Receive Date: 20090724
  Receipt Date: 20090116
  Transmission Date: 20100115
  Serious: No
  Sender: FDA-Public Use
  Company Number: A0764975A

PATIENT
  Sex: Male
  Weight: 147.7 kg

DRUGS (1)
  1. ROSIGLITAZONE MALEATE [Suspect]
     Route: 048

REACTIONS (1)
  - ADVERSE EVENT [None]
